FAERS Safety Report 5015086-3 (Version None)
Quarter: 2006Q2

REPORT INFORMATION
  Report Type: 
  Country: None (occurrence: None)
  Receive Date: 20060426
  Receipt Date: 20060103
  Transmission Date: 20061013
  Serious: No
  Sender: FDA-Public Use
  Company Number: 220714

PATIENT
  Age: 50 Year
  Sex: Female
  Weight: 148 kg

DRUGS (4)
  1. XOLAIR [Suspect]
     Indication: ASTHMA
     Dosage: 225 MG, Q2W, SUBCUTANEOUS
     Route: 058
     Dates: start: 20051120
  2. PULMICORT [Concomitant]
  3. SINGULAIR [Concomitant]
  4. ALBUTEROL INHALER (ALBUTEROL/ALBUTEROL SULFATE) [Concomitant]

REACTIONS (1)
  - FOOD ALLERGY [None]
